FAERS Safety Report 15316794 (Version 1)
Quarter: 2018Q3

REPORT INFORMATION
  Report Type: Spontaneous
  Country: FR (occurrence: FR)
  Receive Date: 20180824
  Receipt Date: 20180824
  Transmission Date: 20181010
  Serious: Yes (Congenital Anomaly, Other)
  Sender: FDA-Public Use
  Company Number: FR-SA-2018SA229165

PATIENT
  Age: 2 Day
  Sex: Female
  Weight: 2.2 kg

DRUGS (1)
  1. CLOMID [Suspect]
     Active Substance: CLOMIPHENE CITRATE
     Indication: INFERTILITY FEMALE
     Dosage: UNK
     Route: 064
     Dates: start: 2013

REACTIONS (2)
  - Ventricular septal defect [Not Recovered/Not Resolved]
  - Maternal exposure during pregnancy [Unknown]
